FAERS Safety Report 9778516 (Version 1)
Quarter: 2013Q4

REPORT INFORMATION
  Report Type: Spontaneous
  Country: US (occurrence: US)
  Receive Date: 20131223
  Receipt Date: 20131223
  Transmission Date: 20140711
  Serious: Yes (Hospitalization)
  Sender: FDA-Public Use
  Company Number: US-BAYER-2013-156683

PATIENT
  Age: 31 Year
  Sex: Female

DRUGS (8)
  1. YASMIN [Suspect]
     Route: 048
  2. SENOKOT S [Concomitant]
  3. TOPAMAX [Concomitant]
     Dosage: 100 MG, QD
  4. RELPAX [Concomitant]
     Indication: HEADACHE
     Dosage: UNK UNK, PRN
  5. VICODIN [Concomitant]
     Indication: HEADACHE
  6. AMITRIPTYLINE [Concomitant]
     Dosage: 100 MG, HS
  7. ZELNORM [Concomitant]
     Dosage: 6 MG, BID
  8. MACROBID [Concomitant]

REACTIONS (2)
  - Deep vein thrombosis [None]
  - Pulmonary embolism [Recovered/Resolved]
